FAERS Safety Report 7064946-0 (Version None)
Quarter: 2010Q4

REPORT INFORMATION
  Report Type: 
  Country: None (occurrence: None)
  Receive Date: 20101027
  Receipt Date: 20101020
  Transmission Date: 20110411
  Serious: Yes (Hospitalization)
  Sender: FDA-Public Use
  Company Number: IT-ELI_LILLY_AND_COMPANY-IT201009004175

PATIENT
  Sex: Male
  Weight: 69 kg

DRUGS (4)
  1. CHK-1 INHIBITOR I (LY2603618) [Suspect]
     Indication: NON-SMALL CELL LUNG CANCER METASTATIC
     Dosage: 150 MG/M2, UNK
     Route: 042
     Dates: start: 20100714, end: 20100906
  2. PEMETREXED [Suspect]
     Indication: NON-SMALL CELL LUNG CANCER METASTATIC
     Dosage: 500 MG/M2, UNK
     Route: 042
     Dates: start: 20100714, end: 20100906
  3. FOLIC ACID [Concomitant]
     Indication: PREMEDICATION
     Dates: start: 20100705
  4. METFORMIN HCL [Concomitant]
     Indication: DIABETES MELLITUS
     Dates: start: 20040101

REACTIONS (1)
  - INFLAMMATION [None]
